FAERS Safety Report 14897935 (Version 2)
Quarter: 2018Q2

REPORT INFORMATION
  Report Type: Spontaneous
  Country: US (occurrence: US)
  Receive Date: 20180515
  Receipt Date: 20180517
  Transmission Date: 20180711
  Serious: Yes (Other)
  Sender: FDA-Public Use
  Company Number: US-SA-2017SA226474

PATIENT
  Age: 58 Year
  Sex: Male

DRUGS (4)
  1. LANTUS [Concomitant]
     Active Substance: INSULIN GLARGINE
     Route: 065
     Dates: end: 201701
  2. TOUJEO [Suspect]
     Active Substance: INSULIN GLARGINE
     Indication: TYPE 2 DIABETES MELLITUS
     Dosage: DOSE: 30-50 U, TYPICALLY HAS BEEN TAKING 45 U
     Route: 051
     Dates: start: 201701
  3. SOLOSTAR [Suspect]
     Active Substance: DEVICE
     Dates: start: 201701
  4. INVOKANA [Concomitant]
     Active Substance: CANAGLIFLOZIN
     Route: 065

REACTIONS (5)
  - Blood glucose decreased [Unknown]
  - Loss of consciousness [Recovered/Resolved]
  - Blood glucose increased [Unknown]
  - Drug ineffective [Unknown]
  - Injection site discolouration [Unknown]

NARRATIVE: CASE EVENT DATE: 2017
